FAERS Safety Report 21798178 (Version 1)
Quarter: 2022Q4

REPORT INFORMATION
  Report Type: Spontaneous
  Country: US (occurrence: US)
  Receive Date: 20221230
  Receipt Date: 20221230
  Transmission Date: 20230112
  Serious: Yes (Other)
  Sender: FDA-Public Use
  Company Number: US-PFIZER INC-PV202200133095

PATIENT
  Age: 37 Year
  Sex: Male

DRUGS (8)
  1. METHOTREXATE SODIUM [Suspect]
     Active Substance: METHOTREXATE SODIUM
     Indication: Polychondritis
     Dosage: UNK
     Route: 058
     Dates: start: 202205
  2. ACTEMRA [Concomitant]
     Active Substance: TOCILIZUMAB
     Indication: Polychondritis
     Dosage: UNK
     Route: 058
     Dates: start: 202207
  3. TOZINAMERAN [Concomitant]
     Active Substance: TOZINAMERAN
     Indication: COVID-19 immunisation
     Dosage: UNK
     Route: 030
     Dates: start: 20220526, end: 20220526
  4. BNT162B2;BNT162B2 OMI BA.4-5 [Concomitant]
     Indication: COVID-19 immunisation
     Dosage: UNK
     Dates: start: 20221013, end: 20221013
  5. INFLUENZA VIRUS VACCINE [Concomitant]
     Active Substance: INFLUENZA VIRUS VACCINE
     Dosage: UNK
     Route: 030
     Dates: start: 20221006, end: 20221006
  6. IVABRADINE [Concomitant]
     Active Substance: IVABRADINE
     Indication: Sinus tachycardia
     Dosage: UNK
     Route: 048
     Dates: start: 202211
  7. PREDNISONE [Concomitant]
     Active Substance: PREDNISONE
     Indication: Polychondritis
     Dosage: UNK
     Route: 048
     Dates: start: 202204
  8. ROSUVASTATIN [Concomitant]
     Active Substance: ROSUVASTATIN
     Indication: Blood cholesterol increased
     Dosage: UNK
     Route: 048
     Dates: start: 202211

REACTIONS (3)
  - COVID-19 [Not Recovered/Not Resolved]
  - Condition aggravated [Unknown]
  - Off label use [Unknown]
